FAERS Safety Report 9239133 (Version 1)
Quarter: 2013Q2

REPORT INFORMATION
  Report Type: Report from Study
  Country: US (occurrence: US)
  Receive Date: 20130418
  Receipt Date: 20130418
  Transmission Date: 20140414
  Serious: No
  Sender: FDA-Public Use
  Company Number: US-VERTEX PHARMACEUTICALS INC.-2013-004886

PATIENT
  Sex: Male
  Weight: 104 kg

DRUGS (12)
  1. VX-950 (TELAPREVIR) [Suspect]
     Indication: HEPATITIS C
     Dosage: 750 MG, TID
     Route: 048
  2. PEGASYS [Suspect]
     Indication: HEPATITIS C
  3. RIBAVIRIN [Suspect]
     Indication: HEPATITIS C
     Dosage: 400 MG, UNK
  4. CRESTOR [Concomitant]
     Dosage: 10 MG, UNK
  5. DIOVAN HCT [Concomitant]
     Dosage: 160-12.5
  6. EFFEXOR [Concomitant]
     Dosage: 150 MG, UNK
  7. KLONOPIN [Concomitant]
     Dosage: 0.5 MG, UNK
  8. REQUIP [Concomitant]
     Dosage: 0.25 MG, UNK
  9. MILK THISTLE [Concomitant]
     Dosage: 500 MG, UNK
  10. LEVEMIR [Concomitant]
  11. XANAX [Concomitant]
     Dosage: 0.5 MG, UNK
  12. HAIR/ SKIN/ NAILS [Concomitant]

REACTIONS (4)
  - Irritability [Unknown]
  - Weight decreased [Unknown]
  - Abdominal pain upper [Unknown]
  - Diarrhoea [Unknown]
